FAERS Safety Report 23726810 (Version 1)
Quarter: 2024Q2

REPORT INFORMATION
  Report Type: Spontaneous
  Country: IT (occurrence: IT)
  Receive Date: 20240410
  Receipt Date: 20240410
  Transmission Date: 20240716
  Serious: Yes (Other)
  Sender: FDA-Public Use
  Company Number: IT-SUN PHARMACEUTICAL INDUSTRIES LTD-2024RR-441388

PATIENT
  Age: 68 Year
  Sex: Female
  Weight: 65 kg

DRUGS (3)
  1. OXALIPLATIN [Suspect]
     Active Substance: OXALIPLATIN
     Indication: Gastric neoplasm
     Dosage: 120MG PER CYCLE
     Route: 065
     Dates: start: 20230630
  2. FLUOROURACIL [Suspect]
     Active Substance: FLUOROURACIL
     Indication: Gastric neoplasm
     Dosage: 3600 MG PER CYCLE
     Route: 065
     Dates: start: 20230630
  3. DOCETAXEL [Suspect]
     Active Substance: DOCETAXEL\DOCETAXEL ANHYDROUS
     Indication: Gastric neoplasm
     Dosage: 70MG A CYCLE
     Route: 065
     Dates: start: 20230630

REACTIONS (2)
  - Neutropenia [Recovered/Resolved]
  - Laryngeal oedema [Recovered/Resolved]

NARRATIVE: CASE EVENT DATE: 20230713
